FAERS Safety Report 6688248-7 (Version None)
Quarter: 2010Q2

REPORT INFORMATION
  Report Type: 
  Country: None (occurrence: None)
  Receive Date: 20100420
  Receipt Date: 20100415
  Transmission Date: 20101027
  Serious: Yes (Death)
  Sender: FDA-Public Use
  Company Number: JP-BAYER-200913641BYL

PATIENT
  Age: 80 Year
  Sex: Male
  Weight: 48 kg

DRUGS (9)
  1. NEXAVAR [Suspect]
     Indication: HEPATIC NEOPLASM MALIGNANT
     Dosage: TOTAL DAILY DOSE: 800 MG  UNIT DOSE: 200 MG
     Route: 048
     Dates: start: 20090626, end: 20090908
  2. NEXAVAR [Suspect]
     Dosage: UNIT DOSE: 200 MG
     Route: 048
     Dates: start: 20090909, end: 20090912
  3. KERATINAMIN [Concomitant]
     Indication: PROPHYLAXIS
     Route: 061
     Dates: start: 20090715
  4. LASIX [Concomitant]
     Dosage: UNIT DOSE: 40 MG
     Route: 048
     Dates: start: 20090812, end: 20091019
  5. LIVACT [Concomitant]
     Dosage: UNIT DOSE: 4.15 G
     Route: 048
     Dates: start: 20090812, end: 20091019
  6. CONIEL [Concomitant]
     Dosage: UNIT DOSE: 4 MG
     Route: 048
     Dates: start: 20090924, end: 20091019
  7. ALDACTONE [Concomitant]
     Dosage: UNIT DOSE: 25 MG
     Route: 048
     Dates: start: 20090924, end: 20091019
  8. ASTOMIN [Concomitant]
     Dosage: UNIT DOSE: 10 MG
     Route: 048
     Dates: start: 20090912
  9. BROCIN CODEINE [Concomitant]
     Route: 048
     Dates: start: 20090913

REACTIONS (7)
  - ASCITES [None]
  - DECREASED APPETITE [None]
  - DIARRHOEA [None]
  - HEPATIC NEOPLASM MALIGNANT [None]
  - MALAISE [None]
  - MALIGNANT NEOPLASM PROGRESSION [None]
  - PROTHROMBIN LEVEL DECREASED [None]
